FAERS Safety Report 6527122-3 (Version None)
Quarter: 2010Q1

REPORT INFORMATION
  Report Type: 
  Country: None (occurrence: None)
  Receive Date: 20100105
  Receipt Date: 20091230
  Transmission Date: 20100710
  Serious: Yes (Death, Other)
  Sender: FDA-Public Use
  Company Number: TR-ELI_LILLY_AND_COMPANY-TR200912006045

PATIENT
  Age: 35 Year
  Sex: Female

DRUGS (2)
  1. HUMULIN 70/30 [Suspect]
     Indication: DIABETES MELLITUS
     Dosage: 24 IU, DAILY (1/D)
     Route: 058
     Dates: start: 20090930
  2. EKLIPS [Concomitant]
     Indication: HYPERTENSION
     Dosage: UNK UNK, DAILY (1/D)
     Route: 048
     Dates: start: 20080101

REACTIONS (3)
  - DRUG EXPOSURE DURING PREGNANCY [None]
  - FOETAL DISORDER [None]
  - INTRA-UTERINE DEATH [None]
